FAERS Safety Report 4589132-5 (Version None)
Quarter: 2005Q1

REPORT INFORMATION
  Report Type: 
  Country: None (occurrence: None)
  Receive Date: 20050125
  Receipt Date: 20041013
  Transmission Date: 20050727
  Serious: No
  Sender: FDA-Public Use
  Company Number: USA040362202

PATIENT
  Age: 85 Year
  Sex: Female

DRUGS (4)
  1. FORTEO [Suspect]
     Indication: OSTEOPOROSIS
     Dates: start: 20031001
  2. TYLENOL ARTHRITIS (PARACETAML) [Concomitant]
  3. MULTI-VITAMINS [Concomitant]
  4. BEXTRA [Concomitant]

REACTIONS (4)
  - NIGHT CRAMPS [None]
  - PAIN IN EXTREMITY [None]
  - PAIN IN JAW [None]
  - PAIN OF SKIN [None]
